FAERS Safety Report 6886439-3 (Version None)
Quarter: 2010Q3

REPORT INFORMATION
  Report Type: 
  Country: None (occurrence: None)
  Receive Date: 20100729
  Receipt Date: 20090615
  Transmission Date: 20110219
  Serious: No
  Sender: FDA-Public Use
  Company Number: US-PFIZER INC-2009176948

PATIENT
  Sex: Female
  Weight: 68 kg

DRUGS (5)
  1. CELEBREX [Suspect]
     Indication: BURSITIS
     Dosage: UNK
     Dates: start: 20081201, end: 20090101
  2. ACETYLSALICYLIC ACID [Concomitant]
     Dosage: UNK
  3. FUROSEMIDE [Concomitant]
     Dosage: UNK
  4. ENALAPRIL [Concomitant]
     Dosage: UNK
  5. ZOLOFT [Concomitant]
     Dosage: UNK

REACTIONS (2)
  - ALOPECIA [None]
  - BLOOD TEST ABNORMAL [None]
